FAERS Safety Report 5114169-7 (Version None)
Quarter: 2006Q3

REPORT INFORMATION
  Report Type: 
  Country: None (occurrence: None)
  Receive Date: 20060920
  Receipt Date: 20060907
  Transmission Date: 20061208
  Serious: Yes (Other)
  Sender: FDA-Public Use
  Company Number: 2006109440

PATIENT
  Sex: Male

DRUGS (2)
  1. GABAPENTIN [Suspect]
  2. PREGABALIN (PREGABALIN) [Suspect]

REACTIONS (5)
  - ARTERIAL DISORDER [None]
  - BLOOD PRESSURE INCREASED [None]
  - CEREBROVASCULAR ACCIDENT [None]
  - LOSS OF CONSCIOUSNESS [None]
  - UNEVALUABLE EVENT [None]
